FAERS Safety Report 9851704 (Version 2)
Quarter: 2014Q1

REPORT INFORMATION
  Report Type: Spontaneous
  Country: DE (occurrence: DE)
  Receive Date: 20140129
  Receipt Date: 20140313
  Transmission Date: 20141002
  Serious: Yes (Hospitalization, Other)
  Sender: FDA-Public Use
  Company Number: DE-AMGEN-DEUSP2014005872

PATIENT
  Age: 55 Year
  Sex: Female

DRUGS (3)
  1. ENBREL [Suspect]
     Indication: RHEUMATOID ARTHRITIS
     Dosage: 50 MG, WEEKLY
     Route: 065
     Dates: start: 20130301
  2. PREDNISOLON                        /00016201/ [Concomitant]
     Dosage: UNK
  3. LODOTRA [Concomitant]
     Dosage: UNK

REACTIONS (1)
  - Musculoskeletal disorder [Not Recovered/Not Resolved]
